FAERS Safety Report 18190145 (Version 2)
Quarter: 2020Q3

REPORT INFORMATION
  Report Type: Report from Study
  Country: JP (occurrence: JP)
  Receive Date: 20200824
  Receipt Date: 20200916
  Transmission Date: 20201103
  Serious: Yes (Hospitalization)
  Sender: FDA-Public Use
  Company Number: JP-ALLERGAN-2031776US

PATIENT
  Sex: Male

DRUGS (3)
  1. BLINDED BRIMONIDINE;TIMOLOL ? BP [Suspect]
     Active Substance: BRIMONIDINE TARTRATE\TIMOLOL MALEATE
     Indication: OPEN ANGLE GLAUCOMA
     Dosage: 1 GTT, BID
     Route: 047
     Dates: start: 20200613, end: 20200808
  2. BLINDED BRIMONIDINE;TIMOLOL ? BP [Suspect]
     Active Substance: BRIMONIDINE TARTRATE\TIMOLOL MALEATE
     Indication: OCULAR HYPERTENSION
  3. LATANOPROST. [Suspect]
     Active Substance: LATANOPROST
     Indication: PRODUCT USED FOR UNKNOWN INDICATION
     Route: 047

REACTIONS (1)
  - Inguinal hernia [Recovered/Resolved]

NARRATIVE: CASE EVENT DATE: 20200624
